FAERS Safety Report 4585740-6 (Version None)
Quarter: 2005Q1

REPORT INFORMATION
  Report Type: 
  Country: None (occurrence: None)
  Receive Date: 20050214
  Receipt Date: 20041018
  Transmission Date: 20050727
  Serious: Yes (Death, Life-Threatening, Hospitalization)
  Sender: FDA-Public Use
  Company Number: 05-100

PATIENT
  Age: 76 Year
  Sex: Female

DRUGS (14)
  1. DEXAMETHASONE [Suspect]
     Indication: MULTIPLE MYELOMA
     Dosage: 40 MG/DAY, ORAL
     Route: 048
     Dates: start: 20011103, end: 20011120
  2. AMITRIPTYLINE HCL [Concomitant]
  3. OXYCODONE [Concomitant]
  4. ZOLPIDEM TARTRATE [Concomitant]
  5. VERAPAMIL [Concomitant]
  6. MULTI-VITAMIN [Concomitant]
  7. CALCIUM GLUCONATE [Concomitant]
  8. LANSOPRAZOLE [Concomitant]
  9. TRIMETHOPRIM-SULFAMETHOXAZOLE [Concomitant]
  10. MIRTAZAPINE [Concomitant]
  11. DOCUSATE SODIUM [Concomitant]
  12. CELECOXIB [Concomitant]
  13. HYDROCODONE BITARTRATE AND ACETAMINOPHEN [Concomitant]
  14. RANITIDINE [Concomitant]

REACTIONS (2)
  - DISEASE PROGRESSION [None]
  - MULTIPLE MYELOMA [None]
